FAERS Safety Report 7790413-2 (Version None)
Quarter: 2011Q3

REPORT INFORMATION
  Report Type: 
  Country: None (occurrence: None)
  Receive Date: 20110930
  Receipt Date: 20110808
  Transmission Date: 20111222
  Serious: Yes (Hospitalization)
  Sender: FDA-Public Use
  Company Number: PHHO2011JP13859

PATIENT
  Sex: Male
  Weight: 63 kg

DRUGS (10)
  1. NO TREATMENT RECEIVED [Suspect]
     Indication: HYPERTENSION
     Dosage: NO TREATMENT
  2. SIGMART [Concomitant]
     Indication: VASODILATION PROCEDURE
     Dosage: 15 MG, UNK
     Route: 048
     Dates: start: 20100326
  3. ASPIRIN [Suspect]
     Indication: THROMBOSIS PROPHYLAXIS
     Dosage: 100 MG, DAILY
     Route: 048
     Dates: start: 20100325, end: 20110804
  4. LIVALO [Concomitant]
     Indication: HYPERLIPIDAEMIA
     Dosage: 1 MG, UNK
     Route: 048
     Dates: start: 20100325
  5. ENALAPRIL MALEATE [Concomitant]
     Dosage: 5 MG, UNK
     Route: 048
     Dates: start: 20110806
  6. ENALAPRIL MALEATE [Concomitant]
     Indication: HYPERTENSION
     Dosage: 2.5 MG, UNK
     Route: 048
     Dates: start: 20100325, end: 20110805
  7. CARVEDILOL [Concomitant]
     Indication: CARDIAC FAILURE
     Dosage: 10 MG, UNK
     Route: 048
     Dates: start: 20100326
  8. LENDORMIN [Concomitant]
     Indication: INSOMNIA
     Dosage: 0.25 MG, UNK
     Route: 048
     Dates: start: 20080813
  9. WARFARIN SODIUM [Suspect]
     Indication: THROMBOSIS PROPHYLAXIS
     Dosage: 2.5 MG, DAILY
     Route: 048
     Dates: start: 20100915, end: 20110804
  10. RABEPRAZOLE SODIUM [Concomitant]
     Indication: HYPERCHLORHYDRIA
     Dosage: 10 MG, UNK
     Route: 048

REACTIONS (2)
  - SUBDURAL HAEMATOMA [None]
  - CARDIAC ANEURYSM [None]
